FAERS Safety Report 24616277 (Version 2)
Quarter: 2024Q4

REPORT INFORMATION
  Report Type: Report from Study
  Country: IN (occurrence: IN)
  Receive Date: 20241114
  Receipt Date: 20241120
  Transmission Date: 20250115
  Serious: Yes (Hospitalization)
  Sender: CIPLA
  Company Number: IN-CIPLA LTD.-2024IN12720

PATIENT

DRUGS (7)
  1. SPIRONOLACTONE\TORSEMIDE [Suspect]
     Active Substance: SPIRONOLACTONE\TORSEMIDE
     Indication: Diuretic therapy
     Dosage: UNK (STRENGTH: 5 MG, 1 DOSE 1 FREQUENCY (UNITS UNSPECIFIED))
     Route: 048
     Dates: start: 20241029
  2. WARFARIN SODIUM [Suspect]
     Active Substance: WARFARIN SODIUM
     Indication: Anticoagulant therapy
     Dosage: UNK (1 DOSE 1 FREQUENCY (UNITS UNSPECIFIED))
     Route: 048
     Dates: start: 20241029
  3. AZITHROMYCIN [Suspect]
     Active Substance: AZITHROMYCIN
     Indication: Product used for unknown indication
     Dosage: 500 (UNITS UNSPECIFIED), 1 DOSE
     Route: 048
     Dates: start: 20241029
  4. VIZYLAC [LACTOBACILLUS NOS] [Concomitant]
     Indication: Product used for unknown indication
     Dosage: UNK
     Route: 065
     Dates: start: 20241029
  5. LEVOTHYROXINE [Concomitant]
     Active Substance: LEVOTHYROXINE
     Indication: Product used for unknown indication
     Dosage: UNK
     Route: 065
     Dates: start: 20241029
  6. MET XL [Concomitant]
     Indication: Product used for unknown indication
     Dosage: UNK
     Route: 065
     Dates: start: 20241029
  7. PAN L [Concomitant]
     Indication: Product used for unknown indication
     Dosage: UNK
     Route: 065
     Dates: start: 20241029

REACTIONS (2)
  - Cardiac disorder [Not Recovered/Not Resolved]
  - Incision site swelling [Not Recovered/Not Resolved]

NARRATIVE: CASE EVENT DATE: 20240101
